FAERS Safety Report 7321266-4 (Version None)
Quarter: 2011Q1

REPORT INFORMATION
  Report Type: 
  Country: None (occurrence: None)
  Receive Date: 20110216
  Receipt Date: 20110202
  Transmission Date: 20110831
  Serious: Yes (Hospitalization)
  Sender: FDA-Public Use
  Company Number: 2011MA001053

PATIENT
  Age: 39 Year

DRUGS (5)
  1. CON MEDS [Concomitant]
  2. VERAPAMIL HCL [Suspect]
     Dosage: 1.2 G
  3. PROPRANOLOL [Suspect]
     Dosage: 4 G
  4. PREV MEDS [Concomitant]
  5. BETAXOLOL [Suspect]
     Dosage: 6.8 G

REACTIONS (9)
  - RENAL FAILURE ACUTE [None]
  - OVERDOSE [None]
  - TOXICITY TO VARIOUS AGENTS [None]
  - CARDIAC ARREST [None]
  - THROMBOSIS [None]
  - PERIPHERAL ISCHAEMIA [None]
  - SHOCK [None]
  - VENA CAVA THROMBOSIS [None]
  - COMA [None]
